FAERS Safety Report 22017415 (Version 1)
Quarter: 2023Q1

REPORT INFORMATION
  Report Type: Spontaneous
  Country: CA (occurrence: CA)
  Receive Date: 20230221
  Receipt Date: 20230221
  Transmission Date: 20230418
  Serious: Yes (Other)
  Sender: FDA-Public Use
  Company Number: CA-PFIZER INC-202300073518

PATIENT
  Age: 37 Year
  Sex: Female
  Weight: 75 kg

DRUGS (4)
  1. METHOTREXATE SODIUM [Suspect]
     Active Substance: METHOTREXATE SODIUM
     Indication: Bowel movement irregularity
     Dosage: 25 MG, WEEKLY
     Route: 042
  2. AMINOSALICYLIC ACID [Concomitant]
     Active Substance: AMINOSALICYLIC ACID
     Dosage: UNKNOWN DOSAGE
  3. MESALAMINE [Concomitant]
     Active Substance: MESALAMINE
     Dosage: UNKNOWN DOSAGE
  4. PREDNISONE [Concomitant]
     Active Substance: PREDNISONE
     Dosage: 30 MG, TAPERING DOSE 5MG Q WEEKLY - UNTIL FINISHED

REACTIONS (6)
  - Haematochezia [Not Recovered/Not Resolved]
  - Malaise [Not Recovered/Not Resolved]
  - Episcleritis [Not Recovered/Not Resolved]
  - Faecal calprotectin increased [Unknown]
  - Off label use [Unknown]
  - Drug ineffective for unapproved indication [Not Recovered/Not Resolved]

NARRATIVE: CASE EVENT DATE: 20210101
